FAERS Safety Report 9592486 (Version 1)
Quarter: 2013Q3

REPORT INFORMATION
  Report Type: Spontaneous
  Country: US (occurrence: None)
  Receive Date: 20130927
  Receipt Date: 20130927
  Transmission Date: 20140515
  Serious: Yes (Other)
  Sender: FDA-Public Use
  Company Number: CABO-13003225

PATIENT
  Age: 49 Year
  Sex: Male

DRUGS (1)
  1. COMETRIQ [Suspect]
     Indication: METASTASES TO LUNG
     Route: 048
     Dates: start: 20130806, end: 2013

REACTIONS (3)
  - Respiratory tract congestion [None]
  - Abdominal pain upper [None]
  - Hypertension [None]
